FAERS Safety Report 16598625 (Version 1)
Quarter: 2019Q3

REPORT INFORMATION
  Report Type: Spontaneous
  Country: US (occurrence: US)
  Receive Date: 20190719
  Receipt Date: 20190719
  Transmission Date: 20191004
  Serious: Yes (Other)
  Sender: FDA-Public Use
  Company Number: US-THE MENTHOLATUM COMPANY-2071051

PATIENT
  Sex: Female

DRUGS (1)
  1. EQUATE COOL AND HEAT EXTRA STRENGTH [Suspect]
     Active Substance: MENTHOL

REACTIONS (1)
  - Swelling [Not Recovered/Not Resolved]
